FAERS Safety Report 9792066 (Version 2)
Quarter: 2014Q1

REPORT INFORMATION
  Report Type: Spontaneous
  Country: FR (occurrence: FR)
  Receive Date: 20140102
  Receipt Date: 20140116
  Transmission Date: 20141002
  Serious: Yes (Other)
  Sender: FDA-Public Use
  Company Number: FR-US-EMD SERONO, INC.-7259816

PATIENT
  Sex: Female
  Weight: 70 kg

DRUGS (2)
  1. OVITRELLE [Suspect]
     Indication: PRODUCT USED FOR UNKNOWN INDICATION
     Route: 058
     Dates: start: 20130728, end: 20130728
  2. LUTRELEF                           /00486502/ [Concomitant]
     Indication: ANOVULATORY CYCLE
     Route: 058
     Dates: start: 20130625, end: 20130727

REACTIONS (1)
  - Visual field defect [Recovered/Resolved]
